FAERS Safety Report 19095115 (Version 2)
Quarter: 2021Q3

REPORT INFORMATION
  Report Type: Other
  Country: US (occurrence: US)
  Receive Date: 20210406
  Receipt Date: 20210726
  Transmission Date: 20211014
  Serious: Yes (Hospitalization, Other)
  Sender: FDA-Public Use
  Company Number: US-INTERCEPT-PM2021001042

PATIENT
  Sex: Female

DRUGS (3)
  1. OCALIVA [Suspect]
     Active Substance: OBETICHOLIC ACID
     Indication: PRIMARY BILIARY CHOLANGITIS
     Dosage: 5 MILLIGRAM, QD
     Route: 048
     Dates: start: 20170406
  2. URSODIOL. [Concomitant]
     Active Substance: URSODIOL
     Dosage: UNK, TID
  3. OCALIVA [Suspect]
     Active Substance: OBETICHOLIC ACID
     Dosage: 5 MILLIGRAM, BID
     Route: 048

REACTIONS (12)
  - Dysphagia [Unknown]
  - Pruritus [Recovered/Resolved]
  - Therapy interrupted [Recovered/Resolved]
  - Corneal disorder [Unknown]
  - Visual impairment [Unknown]
  - Bedridden [Unknown]
  - Malaise [Unknown]
  - Pollakiuria [Unknown]
  - Rheumatoid arthritis [Unknown]
  - Wheelchair user [Unknown]
  - Scratch [Unknown]
  - Scar [Unknown]
